FAERS Safety Report 4453375-1 (Version None)
Quarter: 2004Q3

REPORT INFORMATION
  Report Type: 
  Country: None (occurrence: None)
  Receive Date: 20040920
  Receipt Date: 20040909
  Transmission Date: 20050211
  Serious: Yes (Other)
  Sender: FDA-Public Use
  Company Number: US-JNJFOC-20040903564

PATIENT
  Age: 58 Year
  Sex: Female
  Weight: 56.7 kg

DRUGS (6)
  1. TOPAMAX [Suspect]
     Dates: start: 20020801
  2. TOPAMAX [Suspect]
     Indication: MIGRAINE
     Dates: start: 20020801
  3. PEPCID [Concomitant]
  4. PRILOSEC [Concomitant]
  5. ZOMIG [Concomitant]
  6. SERAX [Concomitant]

REACTIONS (5)
  - ANTHRAX [None]
  - CHEMICAL POISONING [None]
  - PANCREATITIS [None]
  - UNEXPECTED THERAPEUTIC DRUG EFFECT [None]
  - WEIGHT DECREASED [None]
